FAERS Safety Report 17478382 (Version 1)
Quarter: 2020Q1

REPORT INFORMATION
  Report Type: Report from Study
  Country: CA (occurrence: CA)
  Receive Date: 20200228
  Receipt Date: 20200228
  Transmission Date: 20200409
  Serious: Yes (Other)
  Sender: FDA-Public Use
  Company Number: CA-JNJFOC-20191007346

PATIENT
  Sex: Female
  Weight: 49.9 kg

DRUGS (1)
  1. STELARA [Suspect]
     Active Substance: USTEKINUMAB
     Indication: CROHN^S DISEASE
     Dosage: STRENGTH = 90 MG?13/AUG/2018
     Route: 058
     Dates: start: 20180618

REACTIONS (5)
  - Drug level decreased [Unknown]
  - Nasopharyngitis [Recovering/Resolving]
  - Product use issue [Unknown]
  - Crohn^s disease [Unknown]
  - Off label use [Unknown]
